FAERS Safety Report 12398085 (Version 1)
Quarter: 2016Q2

REPORT INFORMATION
  Report Type: Spontaneous
  Country: DK (occurrence: DK)
  Receive Date: 20160524
  Receipt Date: 20160524
  Transmission Date: 20160815
  Serious: Yes (Other)
  Sender: FDA-Public Use
  Company Number: DK-B.I. PHARMACEUTICALS,INC./RIDGEFIELD-2016-BI-31704DB

PATIENT
  Age: 50 Year
  Sex: Female
  Weight: 83 kg

DRUGS (2)
  1. CATAPRESAN [Suspect]
     Active Substance: CLONIDINE
     Dosage: 100 MCG
     Route: 048
     Dates: end: 201605
  2. CATAPRESAN [Suspect]
     Active Substance: CLONIDINE
     Indication: MENOPAUSAL SYMPTOMS
     Dosage: 50 MCG
     Route: 048
     Dates: start: 20151027

REACTIONS (10)
  - Type 2 diabetes mellitus [Unknown]
  - Thirst [Not Recovered/Not Resolved]
  - Nausea [Unknown]
  - Dental caries [Not Recovered/Not Resolved]
  - Polyuria [Unknown]
  - Constipation [Unknown]
  - Dry eye [Unknown]
  - Sensory disturbance [Unknown]
  - Vision blurred [Unknown]
  - Dry mouth [Unknown]

NARRATIVE: CASE EVENT DATE: 2015
